FAERS Safety Report 15583255 (Version 1)
Quarter: 2018Q4

REPORT INFORMATION
  Report Type: Spontaneous
  Country: US (occurrence: US)
  Receive Date: 20181103
  Receipt Date: 20181103
  Transmission Date: 20190205
  Serious: No
  Sender: FDA-Public Use
  Company Number: US-TEVA-2018-US-970562

PATIENT
  Sex: Female

DRUGS (3)
  1. METOPROLOL SUCCINATE ER [Suspect]
     Active Substance: METOPROLOL SUCCINATE
     Indication: HYPERTENSION
     Dosage: 12.5 MILLIGRAM DAILY;
     Route: 065
  2. HYDROCHLOROTHIAZIDE IDEX [Suspect]
     Active Substance: HYDROCHLOROTHIAZIDE
     Dosage: 6.25 MILLIGRAM DAILY;
  3. LISINOPRIL MYLAN [Suspect]
     Active Substance: LISINOPRIL
     Dosage: 2.5 MILLIGRAM DAILY;

REACTIONS (2)
  - Rash [Unknown]
  - Wrong technique in product usage process [Unknown]
